FAERS Safety Report 24948695 (Version 1)
Quarter: 2025Q1

REPORT INFORMATION
  Report Type: Spontaneous
  Country: ES (occurrence: ES)
  Receive Date: 20250210
  Receipt Date: 20250210
  Transmission Date: 20250408
  Serious: Yes (Life-Threatening, Hospitalization)
  Sender: ACCORD
  Company Number: None

PATIENT
  Age: 74 Year
  Sex: Male

DRUGS (2)
  1. CISPLATIN [Suspect]
     Active Substance: CISPLATIN
     Indication: Anaplastic large cell lymphoma T- and null-cell types
     Dates: start: 20220820, end: 20220920
  2. GEMCITABINE [Concomitant]
     Active Substance: GEMCITABINE
     Indication: Anaplastic large cell lymphoma T- and null-cell types
     Dates: start: 20220820, end: 20220920

REACTIONS (2)
  - Renal tubular necrosis [Recovered/Resolved with Sequelae]
  - Acute kidney injury [Recovered/Resolved with Sequelae]

NARRATIVE: CASE EVENT DATE: 20220930
